FAERS Safety Report 21701970 (Version 3)
Quarter: 2025Q3

REPORT INFORMATION
  Report Type: Report from Study
  Country: EU (occurrence: EU)
  Receive Date: 20221208
  Receipt Date: 20250816
  Transmission Date: 20251020
  Serious: Yes (Other)
  Sender: AUROBINDO
  Company Number: EU-MYLANLABS-2022M1136881

PATIENT
  Age: 73 Year
  Sex: Female

DRUGS (25)
  1. INDAPAMIDE [Interacting]
     Active Substance: INDAPAMIDE
     Indication: Product used for unknown indication
     Route: 065
  2. FLECAINIDE [Interacting]
     Active Substance: FLECAINIDE
     Indication: Product used for unknown indication
     Route: 065
  3. APIXABAN [Interacting]
     Active Substance: APIXABAN
     Indication: Product used for unknown indication
     Route: 065
  4. EZETIMIBE [Interacting]
     Active Substance: EZETIMIBE
     Indication: Product used for unknown indication
     Route: 065
  5. OXALIPLATIN [Interacting]
     Active Substance: OXALIPLATIN
     Indication: Adenocarcinoma of colon
     Route: 042
  6. OXALIPLATIN [Interacting]
     Active Substance: OXALIPLATIN
     Route: 042
  7. OXALIPLATIN [Interacting]
     Active Substance: OXALIPLATIN
     Route: 042
  8. OXALIPLATIN [Interacting]
     Active Substance: OXALIPLATIN
     Route: 042
  9. CAPECITABINE [Interacting]
     Active Substance: CAPECITABINE
     Indication: Adenocarcinoma of colon
     Dosage: 1000 MILLIGRAM/SQ. METER, TWO TIMES A DAY
     Route: 048
  10. CAPECITABINE [Interacting]
     Active Substance: CAPECITABINE
     Route: 048
  11. CAPECITABINE [Interacting]
     Active Substance: CAPECITABINE
     Dosage: 625 MILLIGRAM/SQ. METER, TWO TIMES A DAY
     Route: 048
  12. LOVASTATIN [Interacting]
     Active Substance: LOVASTATIN
     Indication: Product used for unknown indication
     Route: 065
  13. VERAPAMIL [Interacting]
     Active Substance: VERAPAMIL HYDROCHLORIDE
     Indication: Product used for unknown indication
     Route: 065
  14. FOLIC ACID [Interacting]
     Active Substance: FOLIC ACID
     Indication: Product used for unknown indication
     Route: 065
  15. FOLIC ACID [Interacting]
     Active Substance: FOLIC ACID
     Route: 065
  16. IRON [Interacting]
     Active Substance: IRON
     Indication: Product used for unknown indication
     Route: 065
  17. VITAMIN C [Interacting]
     Active Substance: ASCORBIC ACID
     Indication: Product used for unknown indication
     Route: 065
  18. ACEROLA [Interacting]
     Active Substance: ACEROLA
     Indication: Product used for unknown indication
     Route: 065
  19. ESOMEPRAZOLE [Concomitant]
     Active Substance: ESOMEPRAZOLE
     Indication: Product used for unknown indication
     Route: 065
  20. VITAMIN B1 [Interacting]
     Active Substance: THIAMINE HYDROCHLORIDE
     Indication: Product used for unknown indication
     Route: 065
  21. VITAMIN B2 [Interacting]
     Active Substance: RIBOFLAVIN
     Indication: Product used for unknown indication
     Route: 065
  22. VITAMIN B3 [Interacting]
     Active Substance: NIACIN
     Indication: Product used for unknown indication
     Route: 065
  23. VITAMIN B6 [Interacting]
     Active Substance: PYRIDOXINE HYDROCHLORIDE
     Indication: Product used for unknown indication
     Route: 065
  24. VITAMIN B12 [Interacting]
     Active Substance: CYANOCOBALAMIN
     Indication: Product used for unknown indication
     Route: 065
  25. PANTOTHENIC ACID [Interacting]
     Active Substance: PANTOTHENIC ACID
     Indication: Product used for unknown indication
     Route: 065

REACTIONS (6)
  - Diarrhoea [Recovering/Resolving]
  - Palmar-plantar erythrodysaesthesia syndrome [Recovering/Resolving]
  - Conjunctivitis [Recovering/Resolving]
  - Drug interaction [Unknown]
  - Nausea [Recovering/Resolving]
  - Paraesthesia [Recovering/Resolving]
